FAERS Safety Report 6139823-X (Version None)
Quarter: 2009Q2

REPORT INFORMATION
  Report Type: 
  Country: None (occurrence: None)
  Receive Date: 20090401
  Receipt Date: 20090323
  Transmission Date: 20091009
  Serious: Yes (Other)
  Sender: FDA-Public Use
  Company Number: B0567817A

PATIENT
  Sex: Male
  Weight: 98 kg

DRUGS (7)
  1. PAROXETINE HCL [Suspect]
     Dosage: 20MG PER DAY
     Route: 048
     Dates: start: 19990101
  2. LITHIUM CARBONAAT [Concomitant]
     Route: 065
     Dates: start: 20090101, end: 20090301
  3. SEROQUEL [Concomitant]
     Route: 065
     Dates: start: 20080603, end: 20090303
  4. OXAZEPAM [Concomitant]
     Route: 065
     Dates: start: 20080909
  5. PRAVASTATIN [Concomitant]
     Route: 065
     Dates: start: 20070601
  6. METFORMIN HCL [Concomitant]
     Route: 065
     Dates: start: 20090105
  7. GLIMEPIRIDE [Concomitant]
     Route: 065
     Dates: start: 20070705

REACTIONS (6)
  - ASTHENIA [None]
  - DIZZINESS [None]
  - GAIT DISTURBANCE [None]
  - JOINT STIFFNESS [None]
  - SLEEP DISORDER [None]
  - SPEECH DISORDER [None]
